FAERS Safety Report 12236722 (Version 2)
Quarter: 2016Q3

REPORT INFORMATION
  Report Type: Spontaneous
  Country: FR (occurrence: FR)
  Receive Date: 20160405
  Receipt Date: 20160801
  Transmission Date: 20161109
  Serious: Yes (Hospitalization)
  Sender: FDA-Public Use
  Company Number: FR-UCBSA-2016011684

PATIENT
  Age: 75 Year
  Sex: Male

DRUGS (17)
  1. XARELTO [Concomitant]
     Active Substance: RIVAROXABAN
     Indication: PRODUCT USED FOR UNKNOWN INDICATION
     Dosage: 20 MG, ONCE DAILY (QD)
     Route: 048
  2. PANTOPRAZOLE [Concomitant]
     Active Substance: PANTOPRAZOLE SODIUM
     Indication: PRODUCT USED FOR UNKNOWN INDICATION
     Dosage: 40 MG, ONCE DAILY (QD)
     Route: 048
  3. IMODIUM [Concomitant]
     Active Substance: LOPERAMIDE HYDROCHLORIDE
     Indication: DIARRHOEA
     Dosage: 5/DAY
     Dates: start: 20141208
  4. ROCEPHINE [Concomitant]
     Active Substance: CEFTRIAXONE SODIUM
     Indication: PRODUCT USED FOR UNKNOWN INDICATION
     Dosage: UNK
  5. FLUOXETINE [Concomitant]
     Active Substance: FLUOXETINE HYDROCHLORIDE
     Indication: PRODUCT USED FOR UNKNOWN INDICATION
     Dosage: 20 MG, ONCE DAILY (QD)
     Route: 048
  6. PARACETAMOL [Concomitant]
     Active Substance: ACETAMINOPHEN
     Dosage: 2 DF, 4X/DAY (QID) (AS NEEDED)
     Route: 048
  7. SODIUM PHOSPHATE DIBASIC W/SODIUM PHOSPHATE M [Concomitant]
     Active Substance: SODIUM PHOSPHATE, DIBASIC, HEPTAHYDRATE\SODIUM PHOSPHATE, MONOBASIC, MONOHYDRATE
     Indication: PRODUCT USED FOR UNKNOWN INDICATION
     Dosage: 1 DF, ONCE DAILY (QD)
     Route: 054
     Dates: end: 20141210
  8. KEPPRA [Suspect]
     Active Substance: LEVETIRACETAM
     Dosage: 250 MG, 2X/DAY (BID)
     Route: 048
     Dates: start: 201412
  9. URBANYL [Suspect]
     Active Substance: CLOBAZAM
     Dosage: 5 MG, 2X/DAY (BID)
     Route: 048
     Dates: start: 201412, end: 201412
  10. URBANYL [Suspect]
     Active Substance: CLOBAZAM
     Indication: SEIZURE
     Dosage: 5 MG, ONCE DAILY (QD)
     Route: 048
     Dates: start: 20141128, end: 201412
  11. ALPRAZOLAM. [Suspect]
     Active Substance: ALPRAZOLAM
     Indication: PRODUCT USED FOR UNKNOWN INDICATION
     Dosage: 0.5 MG, 3X/DAY (TID); (AS NEEDED)
     Route: 048
     Dates: end: 201412
  12. BACLOFEN. [Concomitant]
     Active Substance: BACLOFEN
     Indication: PRODUCT USED FOR UNKNOWN INDICATION
     Dosage: 30 MG, 3X/DAY (TID)
     Route: 048
  13. KEPPRA [Suspect]
     Active Substance: LEVETIRACETAM
     Indication: SEIZURE
     Dosage: 1000 MG, 2X/DAY (BID); (STRENGTH: 500 MG 2-0-2)
     Route: 048
     Dates: start: 20141128, end: 201412
  14. TOPALGIC [Suspect]
     Active Substance: TRAMADOL
     Indication: PRODUCT USED FOR UNKNOWN INDICATION
     Dosage: 50 MG, 2X/DAY (BID)
     Route: 048
     Dates: end: 201412
  15. BISOPROLOL FUMARATE. [Concomitant]
     Active Substance: BISOPROLOL FUMARATE
     Indication: PRODUCT USED FOR UNKNOWN INDICATION
     Dosage: 10 MG, ONCE DAILY (QD)
     Route: 048
  16. TAHOR [Concomitant]
     Active Substance: ATORVASTATIN CALCIUM
     Indication: PRODUCT USED FOR UNKNOWN INDICATION
     Dosage: 10 MG, ONCE DAILY (QD)
     Route: 048
  17. AMLOR [Concomitant]
     Active Substance: AMLODIPINE BESYLATE
     Indication: PRODUCT USED FOR UNKNOWN INDICATION
     Dosage: 10 MG, ONCE DAILY (QD)
     Route: 048

REACTIONS (3)
  - Sinusitis [Unknown]
  - Confusional state [Recovered/Resolved]
  - Hypertonia [Unknown]

NARRATIVE: CASE EVENT DATE: 201412
